FAERS Safety Report 24110006 (Version 1)
Quarter: 2024Q3

REPORT INFORMATION
  Report Type: Spontaneous
  Country: US (occurrence: US)
  Receive Date: 20240718
  Receipt Date: 20240718
  Transmission Date: 20241017
  Serious: Yes (Hospitalization, Other)
  Sender: FRESENIUS KABI
  Company Number: US-FreseniusKabi-FK202411215

PATIENT
  Sex: Male

DRUGS (6)
  1. DEXAMETHASONE [Suspect]
     Active Substance: DEXAMETHASONE
     Indication: Cervical radiculopathy
     Dosage: ROUTE AND FORM OF ADMINISTRATION: CERVICAL EPIDURAL STEROID INJECTION (CESI)?TEN MILLIGRAMS OF DEXAM
  2. LIDOCAINE [Concomitant]
     Active Substance: LIDOCAINE
     Indication: Hypoaesthesia
     Dosage: 1 PERCENT
     Route: 058
  3. LIDOCAINE [Concomitant]
     Active Substance: LIDOCAINE
     Indication: Cervical radiculopathy
  4. LIDOCAINE [Concomitant]
     Active Substance: LIDOCAINE
     Indication: Medical procedure
  5. SALINE [Concomitant]
     Active Substance: SODIUM CHLORIDE
     Indication: Cervical radiculopathy
  6. SALINE [Concomitant]
     Active Substance: SODIUM CHLORIDE
     Indication: Medical procedure

REACTIONS (2)
  - Septic shock [Not Recovered/Not Resolved]
  - Secondary immunodeficiency [Not Recovered/Not Resolved]
